FAERS Safety Report 14023393 (Version 2)
Quarter: 2017Q4

REPORT INFORMATION
  Report Type: Spontaneous
  Country: FR (occurrence: FR)
  Receive Date: 20170929
  Receipt Date: 20171109
  Transmission Date: 20180321
  Serious: Yes (Hospitalization)
  Sender: FDA-Public Use
  Company Number: FR-009507513-1709FRA013507

PATIENT
  Age: 23 Year
  Sex: Female

DRUGS (9)
  1. METRONIDAZOLE. [Suspect]
     Active Substance: METRONIDAZOLE
     Indication: COLITIS
     Dosage: 500 MG, TID (IN 24 HOURS)
     Route: 042
     Dates: start: 20170829
  2. ARACYTINE [Suspect]
     Active Substance: CYTARABINE
     Indication: ACUTE LEUKAEMIA
     Dosage: START DATE: 1ST CYCLE, STOP DATE: 2ND CYCLE (6 DAYS), 40MG/INJECTION (40MG IN 1 CYCLE)
     Route: 037
  3. IMIPENEM AND CILASTATIN [Suspect]
     Active Substance: CILASTATIN SODIUM\IMIPENEM
     Indication: SEPTIC SHOCK
     Dosage: 3 VIALS/DAY
     Route: 042
     Dates: start: 20170823
  4. AMBISOME [Suspect]
     Active Substance: AMPHOTERICIN B
     Indication: FUNGAL INFECTION
     Dosage: 210 MG, QD
     Route: 042
     Dates: start: 20170828, end: 20170830
  5. METHOTREXATE. [Suspect]
     Active Substance: METHOTREXATE
     Indication: ACUTE LEUKAEMIA
     Dosage: STRENGTH: 25MG/ML, START DATE:1ST CYCLE, STOP DATE: 2ND CYCLE, 15MG/ INJECTION (15MG IN 1 CYCLE)
     Route: 037
  6. TRIFLUCAN [Suspect]
     Active Substance: FLUCONAZOLE
     Indication: FUNGAL INFECTION
     Dosage: 400 MG, QD
     Route: 042
     Dates: start: 20170825
  7. DEPO-MEDROL [Suspect]
     Active Substance: METHYLPREDNISOLONE ACETATE
     Indication: ACUTE LEUKAEMIA
     Dosage: START DATE: 1ST CYCLE, STOP DATE: 2ND CYCLE (6 DAYS), 40MG/INJECTION (40MG IN 1 CYCLE)
     Route: 037
  8. ACYCLOVIR. [Suspect]
     Active Substance: ACYCLOVIR
     Indication: HERPES SIMPLEX
     Dosage: START DATE: 1ST CYCLE, 700MG, TID
     Route: 042
  9. VANCOMYCIN [Suspect]
     Active Substance: VANCOMYCIN
     Indication: SEPTIC SHOCK
     Dosage: 2500MG, QD
     Route: 042
     Dates: start: 20170825

REACTIONS (1)
  - Palmar-plantar erythrodysaesthesia syndrome [Recovering/Resolving]

NARRATIVE: CASE EVENT DATE: 20170830
